FAERS Safety Report 11669723 (Version 1)
Quarter: 2015Q4

REPORT INFORMATION
  Report Type: Spontaneous
  Country: US (occurrence: US)
  Receive Date: 20151027
  Receipt Date: 20151027
  Transmission Date: 20160304
  Serious: No
  Sender: FDA-Public Use
  Company Number: US-ELI_LILLY_AND_COMPANY-US201004005447

PATIENT
  Age: 79 Year
  Sex: Female

DRUGS (5)
  1. RECLAST [Concomitant]
     Active Substance: ZOLEDRONIC ACID
     Route: 042
     Dates: start: 2008, end: 2008
  2. FORTEO [Suspect]
     Active Substance: TERIPARATIDE
     Indication: OSTEOPOROSIS
     Dosage: 20 UG, DAILY (1/D)
     Dates: start: 20091021
  3. VITAMIN D [Concomitant]
     Active Substance: CHOLECALCIFEROL
     Dosage: 1000 MG, UNK
     Dates: end: 201004
  4. VITAMINS NOS [Concomitant]
     Active Substance: VITAMINS
  5. LOMOTIL [Concomitant]
     Active Substance: ATROPINE SULFATE\DIPHENOXYLATE HYDROCHLORIDE
     Indication: DIARRHOEA

REACTIONS (3)
  - Weight gain poor [Not Recovered/Not Resolved]
  - Fatigue [Recovered/Resolved]
  - Cystitis [Recovered/Resolved]

NARRATIVE: CASE EVENT DATE: 2009
